FAERS Safety Report 9117990 (Version 38)
Quarter: 2022Q3

REPORT INFORMATION
  Report Type: Report from Study
  Country: CA (occurrence: CA)
  Receive Date: 20130226
  Receipt Date: 20220623
  Transmission Date: 20221026
  Serious: Yes (Hospitalization, Other)
  Sender: FDA-Public Use
  Company Number: PHHY2013CA003765

PATIENT
  Age: 71 Year
  Sex: Male

DRUGS (11)
  1. SANDOSTATIN [Suspect]
     Active Substance: OCTREOTIDE ACETATE
     Indication: Carcinoid syndrome
     Dosage: 150 UG, QID
     Route: 058
     Dates: start: 201210, end: 201210
  2. SANDOSTATIN [Suspect]
     Active Substance: OCTREOTIDE ACETATE
  3. SANDOSTATIN [Suspect]
     Active Substance: OCTREOTIDE ACETATE
  4. SANDOSTATIN LAR DEPOT [Suspect]
     Active Substance: OCTREOTIDE ACETATE
     Indication: Carcinoid syndrome
     Dosage: 30 MG, QMO
     Route: 030
     Dates: start: 20121018
  5. SANDOSTATIN LAR DEPOT [Suspect]
     Active Substance: OCTREOTIDE ACETATE
     Dosage: 30 MG, QMO
     Route: 030
     Dates: start: 20130430
  6. SANDOSTATIN LAR DEPOT [Suspect]
     Active Substance: OCTREOTIDE ACETATE
     Dosage: 30 MG, QMO
     Route: 030
     Dates: start: 20170109
  7. SANDOSTATIN LAR DEPOT [Suspect]
     Active Substance: OCTREOTIDE ACETATE
     Dosage: 20 MG, QMO
     Route: 030
     Dates: start: 20200810
  8. SANDOSTATIN LAR DEPOT [Suspect]
     Active Substance: OCTREOTIDE ACETATE
     Dosage: 30 MG, QMO
     Route: 030
  9. VITAMIN B12 [Concomitant]
     Active Substance: CYANOCOBALAMIN
     Indication: Product used for unknown indication
     Dosage: UNK
     Route: 065
  10. MAGNESIUM [Concomitant]
     Active Substance: MAGNESIUM
     Indication: Product used for unknown indication
     Dosage: UNK
     Route: 065
  11. CREATINE [Concomitant]
     Active Substance: CREATINE
     Indication: Renal disorder
     Dosage: UNK
     Route: 065

REACTIONS (47)
  - Hypokalaemia [Unknown]
  - Syncope [Unknown]
  - Hypotension [Unknown]
  - Hepatic lesion [Unknown]
  - Incisional hernia [Unknown]
  - Oropharyngeal squamous cell carcinoma [Unknown]
  - Second primary malignancy [Unknown]
  - Cardiovascular disorder [Unknown]
  - Flushing [Unknown]
  - Eye inflammation [Unknown]
  - Back pain [Unknown]
  - Insomnia [Unknown]
  - Muscle spasms [Unknown]
  - Diarrhoea [Unknown]
  - Mass [Unknown]
  - Urinary tract infection [Recovered/Resolved]
  - Erythema [Recovered/Resolved]
  - Abdominal hernia [Unknown]
  - Peripheral coldness [Unknown]
  - Blister [Unknown]
  - Arthralgia [Unknown]
  - Peripheral swelling [Recovered/Resolved]
  - Pain in extremity [Recovered/Resolved]
  - Gait disturbance [Unknown]
  - Burning sensation [Recovered/Resolved]
  - Peripheral swelling [Unknown]
  - Pain in extremity [Recovered/Resolved]
  - Oedema peripheral [Recovered/Resolved]
  - Arthropathy [Unknown]
  - Blood disorder [Unknown]
  - Benign prostatic hyperplasia [Unknown]
  - Blood pressure systolic increased [Unknown]
  - Pruritus [Unknown]
  - Fungal infection [Unknown]
  - Skin lesion [Unknown]
  - Cough [Unknown]
  - Lipoma [Unknown]
  - Dysphagia [Unknown]
  - Weight decreased [Unknown]
  - Pharyngeal oedema [Unknown]
  - Nasopharyngitis [Recovered/Resolved]
  - Pain [Unknown]
  - Rash [Not Recovered/Not Resolved]
  - Fatigue [Unknown]
  - Dizziness [Recovered/Resolved]
  - Vomiting [Recovered/Resolved]
  - Injection site mass [Unknown]

NARRATIVE: CASE EVENT DATE: 20161208
